FAERS Safety Report 20226395 (Version 3)
Quarter: 2022Q3

REPORT INFORMATION
  Report Type: Spontaneous
  Country: US (occurrence: US)
  Receive Date: 20211224
  Receipt Date: 20220711
  Transmission Date: 20221026
  Serious: No
  Sender: FDA-Public Use
  Company Number: US-BRISTOL-MYERS SQUIBB COMPANY-BMS-2021-133567

PATIENT
  Age: 71 Year
  Sex: Male
  Weight: 136.07 kg

DRUGS (1)
  1. NIVOLUMAB [Suspect]
     Active Substance: NIVOLUMAB
     Indication: Malignant melanoma
     Dosage: 450 MILLIGRAM, Q4WK
     Route: 042
     Dates: start: 202011, end: 202110

REACTIONS (5)
  - Skin haemorrhage [Unknown]
  - Arthritis [Unknown]
  - Pruritus [Unknown]
  - Prescribed underdose [Unknown]
  - Arthralgia [Unknown]
